FAERS Safety Report 8817835 (Version 2)
Quarter: 2013Q1

REPORT INFORMATION
  Report Type: Report from Study
  Country: FR (occurrence: FR)
  Receive Date: 20121004
  Receipt Date: 20130306
  Transmission Date: 20140127
  Serious: Yes (Death)
  Sender: FDA-Public Use
  Company Number: FR-ROCHE-1137944

PATIENT
  Age: 65 Year
  Sex: Male

DRUGS (15)
  1. RITUXIMAB [Suspect]
     Indication: CHRONIC LYMPHOCYTIC LEUKAEMIA
     Route: 041
     Dates: start: 20110719
  2. RITUXIMAB [Suspect]
     Route: 065
  3. RITUXIMAB [Suspect]
     Route: 065
  4. RITUXIMAB [Suspect]
     Route: 065
  5. RITUXIMAB [Suspect]
     Route: 065
  6. RITUXIMAB [Suspect]
     Route: 042
     Dates: start: 20110802, end: 20111005
  7. ENDOXAN [Concomitant]
     Indication: CHRONIC LYMPHOCYTIC LEUKAEMIA
     Route: 002
     Dates: start: 20111005, end: 20111007
  8. ENDOXAN [Concomitant]
     Route: 048
     Dates: start: 20110720, end: 20111007
  9. FLUDARA [Concomitant]
     Indication: CHRONIC LYMPHOCYTIC LEUKAEMIA
     Route: 002
     Dates: start: 20111005, end: 20111007
  10. FLUDARA [Concomitant]
     Route: 048
     Dates: start: 20110720, end: 20111007
  11. LASILIX [Concomitant]
     Route: 065
     Dates: start: 2011
  12. KAYEXALATE [Concomitant]
     Route: 065
     Dates: start: 2012
  13. BRICANYL [Concomitant]
     Route: 065
     Dates: start: 2012
  14. ALDACTONE [Concomitant]
     Route: 065
     Dates: start: 2011
  15. JOSIR [Concomitant]
     Route: 065

REACTIONS (3)
  - Hepatocellular carcinoma [Fatal]
  - Encephalopathy [Fatal]
  - Dyspnoea [Fatal]
